FAERS Safety Report 9486504 (Version 1)
Quarter: 2013Q3

REPORT INFORMATION
  Report Type: Spontaneous
  Country: DE (occurrence: DE)
  Receive Date: 20130829
  Receipt Date: 20130829
  Transmission Date: 20140515
  Serious: Yes (Hospitalization)
  Sender: FDA-Public Use
  Company Number: DE-B.I. PHARMACEUTICALS,INC./RIDGEFIELD-2013-BI-26225DE

PATIENT
  Age: 81 Year
  Sex: Male

DRUGS (12)
  1. PRADAXA [Suspect]
     Indication: CARDIAC ASSISTANCE DEVICE USER
     Route: 048
     Dates: start: 20130503, end: 20130509
  2. ARCOXIA [Suspect]
     Indication: ARTHRITIS
     Route: 048
     Dates: start: 201205, end: 20130503
  3. NOVAMINSULFON [Concomitant]
     Indication: PAIN
     Dosage: 500 MG
     Route: 048
  4. CANDESARTAN [Concomitant]
     Indication: HYPERTENSION
     Dosage: 16 MG
     Route: 048
  5. BISOPROLOL [Concomitant]
     Indication: HYPERTENSION
     Dosage: DAILY DOSE: 5MG-0-2,5 MG
     Route: 048
  6. TORASEMID [Concomitant]
     Indication: HYPERTENSION
     Route: 048
  7. DIGITOXIN [Concomitant]
     Indication: CORONARY ARTERY DISEASE
  8. AMIODARAON [Concomitant]
     Indication: CORONARY ARTERY DISEASE
     Route: 048
  9. PANTOZOL [Concomitant]
     Indication: PROPHYLAXIS
  10. FOSTERSPRAY [Concomitant]
     Indication: CHRONIC OBSTRUCTIVE PULMONARY DISEASE
     Route: 055
  11. SPIRIVA SPRAY [Concomitant]
     Indication: CHRONIC OBSTRUCTIVE PULMONARY DISEASE
     Route: 055
  12. SALBUTAMOL [Concomitant]
     Indication: CHRONIC OBSTRUCTIVE PULMONARY DISEASE

REACTIONS (5)
  - Gastrointestinal angiodysplasia haemorrhagic [Recovered/Resolved]
  - Renal failure acute [Recovered/Resolved]
  - Upper gastrointestinal haemorrhage [Recovered/Resolved]
  - Anaemia [Recovered/Resolved]
  - Haemarthrosis [Recovered/Resolved]
